FAERS Safety Report 10668384 (Version 3)
Quarter: 2015Q1

REPORT INFORMATION
  Report Type: Spontaneous
  Country: US (occurrence: US)
  Receive Date: 20141222
  Receipt Date: 20150309
  Transmission Date: 20150720
  Serious: No
  Sender: FDA-Public Use
  Company Number: US-009507513-1412USA004821

PATIENT
  Age: 20 Year
  Sex: Female
  Weight: 58.5 kg

DRUGS (2)
  1. NEXPLANON [Suspect]
     Active Substance: ETONOGESTREL
     Indication: CONTRACEPTION
     Dosage: UNK
     Route: 059
     Dates: start: 20141208
  2. NEXPLANON [Suspect]
     Active Substance: ETONOGESTREL
     Dosage: UNK
     Route: 059

REACTIONS (4)
  - Device deployment issue [Unknown]
  - Device malfunction [Unknown]
  - Product quality issue [Unknown]
  - Medical device complication [Unknown]

NARRATIVE: CASE EVENT DATE: 20141208
